FAERS Safety Report 4776877-7 (Version None)
Quarter: 2005Q3

REPORT INFORMATION
  Report Type: 
  Country: None (occurrence: None)
  Receive Date: 20050922
  Receipt Date: 20050922
  Transmission Date: 20060218
  Serious: Yes (Other)
  Sender: FDA-Public Use
  Company Number: None

PATIENT
  Sex: Female

DRUGS (2)
  1. LITHIUM [Suspect]
     Indication: BIPOLAR I DISORDER
     Dosage: 450 U QHS [{4 MONTHS]
  2. SEROQUEL [Concomitant]

REACTIONS (2)
  - MOOD ALTERED [None]
  - SUICIDAL IDEATION [None]
